FAERS Safety Report 7767157-6 (Version None)
Quarter: 2011Q3

REPORT INFORMATION
  Report Type: 
  Country: None (occurrence: None)
  Receive Date: 20110922
  Receipt Date: 20100811
  Transmission Date: 20111222
  Serious: No
  Sender: FDA-Public Use
  Company Number: US-ASTRAZENECA-2010SE36050

PATIENT
  Age: 68 Year
  Sex: Female
  Weight: 86.2 kg

DRUGS (13)
  1. LISINOPRIL [Concomitant]
     Route: 048
  2. PROMETHAZINE [Concomitant]
  3. TRAMADOL HCL [Concomitant]
  4. JAMUMET [Concomitant]
  5. SEROQUEL [Suspect]
     Indication: SLEEP DISORDER
     Route: 048
  6. SEROQUEL [Suspect]
     Route: 048
  7. CLONAZEPAM [Concomitant]
  8. LEVOTHYROXINE SODIUM [Concomitant]
  9. SIMVASTATIN [Concomitant]
  10. HYDROCODONE [Concomitant]
  11. SERTRALINE HYDROCHLORIDE [Concomitant]
  12. METOPROLOL TARTRATE [Concomitant]
  13. PRAMIXPEXOLE [Concomitant]

REACTIONS (2)
  - WRONG TECHNIQUE IN DRUG USAGE PROCESS [None]
  - INSOMNIA [None]
